FAERS Safety Report 8049166-5 (Version None)
Quarter: 2012Q1

REPORT INFORMATION
  Report Type: 
  Country: None (occurrence: None)
  Receive Date: 20120117
  Receipt Date: 20120110
  Transmission Date: 20120608
  Serious: Yes (Other)
  Sender: FDA-Public Use
  Company Number: JP-SP-2011-12135

PATIENT
  Sex: Male

DRUGS (1)
  1. IMMUCYST [Suspect]
     Indication: BLADDER CANCER
     Route: 043
     Dates: start: 20110201

REACTIONS (3)
  - SCROTAL ABSCESS [None]
  - TUBERCULOSIS OF GENITOURINARY SYSTEM [None]
  - EPIDIDYMITIS [None]
